FAERS Safety Report 6812918-0 (Version None)
Quarter: 2010Q3

REPORT INFORMATION
  Report Type: 
  Country: None (occurrence: None)
  Receive Date: 20100701
  Receipt Date: 20100628
  Transmission Date: 20110219
  Serious: Yes (Other)
  Sender: FDA-Public Use
  Company Number: AT-BRISTOL-MYERS SQUIBB COMPANY-14782239

PATIENT
  Age: 40 Year
  Sex: Female

DRUGS (2)
  1. ABILIFY [Suspect]
     Indication: SCHIZOPHRENIA, PARANOID TYPE
     Dosage: INTERRUPTED ON SEP09 RESTARTED ON OCT09
     Route: 048
     Dates: start: 20070101
  2. PAROXETINE [Suspect]
     Indication: SCHIZOPHRENIA, PARANOID TYPE
     Route: 048
     Dates: end: 20090901

REACTIONS (3)
  - ABORTION SPONTANEOUS [None]
  - ADVERSE EVENT [None]
  - PREGNANCY [None]
